FAERS Safety Report 8999241 (Version 2)
Quarter: 2013Q1

REPORT INFORMATION
  Report Type: Spontaneous
  Country: US (occurrence: US)
  Receive Date: 20130105
  Receipt Date: 20130213
  Transmission Date: 20140127
  Serious: No
  Sender: FDA-Public Use
  Company Number: US-ASTRAZENECA-2012SE93657

PATIENT
  Age: 62 Year
  Sex: Female

DRUGS (4)
  1. NEXIUM [Suspect]
     Route: 048
  2. NEXIUM [Suspect]
     Route: 048
  3. PRILOSEC [Suspect]
     Route: 048
  4. PRILOSEC [Suspect]
     Dosage: GENERIC
     Route: 048

REACTIONS (2)
  - Frequent bowel movements [Unknown]
  - Abdominal discomfort [Unknown]
